FAERS Safety Report 5929941-0 (Version None)
Quarter: 2008Q4

REPORT INFORMATION
  Report Type: 
  Country: None (occurrence: None)
  Receive Date: 20081024
  Receipt Date: 20081014
  Transmission Date: 20090506
  Serious: Yes (Other)
  Sender: FDA-Public Use
  Company Number: BR-PFIZER INC-2008057246

PATIENT
  Sex: Male
  Weight: 70 kg

DRUGS (6)
  1. CAVERJECT [Suspect]
     Indication: ERECTILE DYSFUNCTION
  2. ALL OTHER THERAPEUTIC PRODUCTS [Concomitant]
     Route: 065
  3. METFORMIN HYDROCHLORIDE [Concomitant]
     Route: 048
  4. COVERSYL [Concomitant]
     Route: 065
  5. PERINDOPRIL [Concomitant]
     Route: 048
  6. ADALAT [Concomitant]
     Route: 048

REACTIONS (3)
  - CEREBROVASCULAR ACCIDENT [None]
  - MEMORY IMPAIRMENT [None]
  - TREMOR [None]
